FAERS Safety Report 16583363 (Version 3)
Quarter: 2019Q3

REPORT INFORMATION
  Report Type: Spontaneous
  Country: CH (occurrence: CH)
  Receive Date: 20190717
  Receipt Date: 20190731
  Transmission Date: 20191004
  Serious: Yes (Hospitalization, Other)
  Sender: FDA-Public Use
  Company Number: CH-SA-2019SA187075

PATIENT
  Age: 58 Year
  Sex: Female
  Weight: 64 kg

DRUGS (1)
  1. MYOZYME [Suspect]
     Active Substance: ALGLUCOSIDASE ALFA
     Indication: GLYCOGEN STORAGE DISEASE TYPE II
     Dosage: 20 MG/KG, QOW
     Route: 042
     Dates: start: 20151209

REACTIONS (39)
  - Forced expiratory volume abnormal [Recovering/Resolving]
  - Bronchitis [Unknown]
  - Cardiac output decreased [Unknown]
  - Gastric dilatation [Unknown]
  - Coma [Unknown]
  - Catarrh [Unknown]
  - Total lung capacity decreased [Recovering/Resolving]
  - Pleural effusion [Unknown]
  - Myopathy [Unknown]
  - Fall [Unknown]
  - Hypoventilation [Unknown]
  - Restrictive pulmonary disease [Recovering/Resolving]
  - Apnoea [Unknown]
  - Weight decreased [Unknown]
  - Somnolence [Unknown]
  - Respiratory failure [Recovering/Resolving]
  - Ventricular dyssynchrony [Unknown]
  - Epistaxis [Recovered/Resolved]
  - Muscular weakness [Unknown]
  - Loss of personal independence in daily activities [Unknown]
  - Forced vital capacity abnormal [Recovering/Resolving]
  - Hypercapnia [Recovering/Resolving]
  - Pulmonary artery dilatation [Unknown]
  - Pain [Unknown]
  - Oxygen saturation decreased [Recovering/Resolving]
  - Poor quality sleep [Unknown]
  - Gait disturbance [Unknown]
  - Fatigue [Unknown]
  - Dyspnoea [Unknown]
  - Diastolic dysfunction [Unknown]
  - Head injury [Recovered/Resolved]
  - Musculoskeletal pain [Not Recovered/Not Resolved]
  - Swelling [Unknown]
  - Condition aggravated [Recovering/Resolving]
  - Facial bones fracture [Recovered/Resolved]
  - Heart valve incompetence [Unknown]
  - Rhinitis [Unknown]
  - Anxiety [Unknown]
  - Product preparation issue [Unknown]

NARRATIVE: CASE EVENT DATE: 201903
